FAERS Safety Report 9351271 (Version 6)
Quarter: 2014Q2

REPORT INFORMATION
  Report Type: Spontaneous
  Country: US (occurrence: US)
  Receive Date: 20130617
  Receipt Date: 20140424
  Transmission Date: 20141212
  Serious: Yes (Hospitalization, Disabling, Other)
  Sender: FDA-Public Use
  Company Number: US-PFIZER INC-2013181144

PATIENT
  Age: 57 Year
  Sex: Male
  Weight: 88.44 kg

DRUGS (3)
  1. LYRICA [Suspect]
     Indication: NEURALGIA
     Dosage: 200 MG, 3X/DAY
     Route: 048
     Dates: start: 201201
  2. LYRICA [Suspect]
     Dosage: 200 MG, 2X/DAY
  3. OXYCONTIN [Concomitant]
     Dosage: 10 MG, UNK
     Route: 048

REACTIONS (7)
  - Suicidal ideation [Unknown]
  - Brachial plexus injury [Unknown]
  - Arthropathy [Unknown]
  - Neuralgia [Unknown]
  - Blood testosterone decreased [Not Recovered/Not Resolved]
  - Hypokinesia [Unknown]
  - Body height decreased [Unknown]
